FAERS Safety Report 4322152-4 (Version None)
Quarter: 2004Q1

REPORT INFORMATION
  Report Type: 
  Country: None (occurrence: None)
  Receive Date: 20040319
  Receipt Date: 20040302
  Transmission Date: 20041129
  Serious: Yes (Death, Hospitalization)
  Sender: FDA-Public Use
  Company Number: A01200401036

PATIENT
  Sex: 0

DRUGS (2)
  1. PLAVIX [Suspect]
     Route: 048
  2. ASPIRIN [Concomitant]

REACTIONS (1)
  - CHEST PAIN [None]
